FAERS Safety Report 8935329 (Version 2)
Quarter: 2013Q1

REPORT INFORMATION
  Report Type: Spontaneous
  Country: GB (occurrence: GB)
  Receive Date: 20121129
  Receipt Date: 20130204
  Transmission Date: 20140127
  Serious: Yes (Other)
  Sender: FDA-Public Use
  Company Number: GB-JNJFOC-20121113106

PATIENT
  Sex: Female

DRUGS (14)
  1. IMODIUM [Suspect]
     Route: 048
  2. IMODIUM [Suspect]
     Indication: ANTIDIARRHOEAL SUPPORTIVE CARE
     Route: 048
     Dates: start: 20111208
  3. BACLOFEN [Concomitant]
     Route: 048
  4. CLOBETASOL PROPIONATE [Concomitant]
     Dosage: ONCE OR TWICE DAILY
     Route: 061
  5. OSMOLITE [Concomitant]
     Route: 065
  6. PROCTOSEDYL [Concomitant]
     Route: 065
  7. SALBUTAMOL [Concomitant]
     Dosage: ONE DOSE THREE OR FOUR TIMES A DAY
     Route: 055
  8. CHLORPHENAMINE [Concomitant]
     Dosage: AS REQUIRED
     Route: 048
  9. DAKTACORT [Concomitant]
     Dosage: FOR 1 WEEK
     Route: 061
  10. UNKNOWN MEDICATION [Concomitant]
     Route: 065
  11. FELDENE [Concomitant]
     Dosage: 3 TO 4 TIMES A DAY
     Route: 065
  12. LOSEC MUPS (OMEPRAZOLE) [Concomitant]
     Dosage: IN THE MORNING (DISPERSED PRIOR TO ADMINISTRATION IN PEG TUBE
     Route: 065
  13. SCOPODERM [Concomitant]
     Route: 061
  14. DOMPERIDONE [Concomitant]
     Route: 048

REACTIONS (1)
  - Gastrostomy [Unknown]
